FAERS Safety Report 12372393 (Version 1)
Quarter: 2016Q2

REPORT INFORMATION
  Report Type: Spontaneous
  Country: US (occurrence: US)
  Receive Date: 20160516
  Receipt Date: 20160516
  Transmission Date: 20160815
  Serious: Yes (Other)
  Sender: FDA-Public Use
  Company Number: US-BAYER-2016-093245

PATIENT
  Age: 54 Year
  Sex: Male

DRUGS (6)
  1. GABAPENTIN. [Concomitant]
     Active Substance: GABAPENTIN
  2. STIVARGA [Suspect]
     Active Substance: REGORAFENIB
     Indication: COLON CANCER
     Dosage: 3 TABLETS DAILY
     Route: 048
  3. STIVARGA [Suspect]
     Active Substance: REGORAFENIB
     Indication: COLON CANCER
     Dosage: 4 TABLETS X 3 WEEKS THEN TAKE 1 WEEK OFF
     Route: 048
     Dates: start: 20160503
  4. FUROSEMIDE. [Concomitant]
     Active Substance: FUROSEMIDE
  5. FENTANYL. [Concomitant]
     Active Substance: FENTANYL
  6. DRONABINOL. [Concomitant]
     Active Substance: DRONABINOL

REACTIONS (5)
  - Diarrhoea [None]
  - Pain in extremity [None]
  - Palmar-plantar erythrodysaesthesia syndrome [None]
  - Gait disturbance [None]
  - Blister [None]

NARRATIVE: CASE EVENT DATE: 20160510
